FAERS Safety Report 14841554 (Version 2)
Quarter: 2018Q2

REPORT INFORMATION
  Report Type: Spontaneous
  Country: US (occurrence: US)
  Receive Date: 20180503
  Receipt Date: 20180609
  Transmission Date: 20180711
  Serious: Yes (Life-Threatening, Hospitalization)
  Sender: FDA-Public Use
  Company Number: US-TEVA-2018-US-887727

PATIENT
  Age: 3 Year

DRUGS (2)
  1. LAMOTRIGINE. [Suspect]
     Active Substance: LAMOTRIGINE
     Indication: ACCIDENTAL OVERDOSE
     Dosage: 7-16 25MG ORALLY DISINTEGRATING TABLETS
     Route: 048
  2. CLONAZEPAM. [Suspect]
     Active Substance: CLONAZEPAM
     Indication: ACCIDENTAL OVERDOSE
     Dosage: 1-6 0.5MG TABLETS
     Route: 048

REACTIONS (5)
  - Toxicity to various agents [Unknown]
  - Somnolence [Unknown]
  - Accidental overdose [Unknown]
  - Generalised tonic-clonic seizure [Recovered/Resolved]
  - Respiratory failure [Unknown]
